FAERS Safety Report 5750862-0 (Version None)
Quarter: 2008Q2

REPORT INFORMATION
  Report Type: 
  Country: None (occurrence: None)
  Receive Date: 20080528
  Receipt Date: 20080522
  Transmission Date: 20081010
  Serious: No
  Sender: FDA-Public Use
  Company Number: US-BAXTER-2008BH002071

PATIENT
  Age: 82 Year
  Sex: Male
  Weight: 75 kg

DRUGS (17)
  1. HEPARIN SODIUM INJECTION [Suspect]
     Indication: PROPHYLAXIS
     Route: 033
     Dates: start: 20010101, end: 20080201
  2. DIOVAN HCT [Concomitant]
     Indication: HYPERTENSION
     Route: 048
  3. ALBUTEROL [Concomitant]
     Indication: RESPIRATORY DISORDER
     Dosage: DOSE UNIT:UNKNOWN
     Route: 048
  4. PROVENTIL [Concomitant]
     Indication: RESPIRATORY DISORDER
     Dosage: DOSE UNIT:UNKNOWN
     Route: 048
  5. EPOGEN [Concomitant]
     Indication: ANAEMIA
     Dosage: DOSE UNIT:UNKNOWN
     Route: 065
  6. PLAVIX [Concomitant]
     Indication: ANTICOAGULANT THERAPY
     Route: 048
  7. GLYBURIDE [Concomitant]
     Indication: DRUG USE FOR UNKNOWN INDICATION
     Route: 048
  8. LANTUS [Concomitant]
     Indication: DIABETES MELLITUS
     Dosage: DOSE UNIT:UNKNOWN
     Route: 065
  9. LIPITOR [Concomitant]
     Indication: DRUG USE FOR UNKNOWN INDICATION
     Route: 048
  10. CALCITRIOL [Concomitant]
     Indication: MINERAL SUPPLEMENTATION
     Dosage: DOSE UNIT:UNKNOWN
     Route: 048
  11. FOLIC ACID [Concomitant]
     Indication: SUPPLEMENTATION THERAPY
     Route: 048
  12. NEOPLEX [Concomitant]
     Indication: DRUG USE FOR UNKNOWN INDICATION
     Dosage: DOSE UNIT:UNKNOWN
     Route: 048
  13. NORVASC [Concomitant]
     Indication: DRUG USE FOR UNKNOWN INDICATION
     Route: 048
  14. PHOSLO [Concomitant]
     Indication: DRUG USE FOR UNKNOWN INDICATION
     Route: 048
  15. PROTONIX [Concomitant]
     Indication: GASTRIC DISORDER
     Route: 048
  16. PROPYL XL [Concomitant]
     Indication: DRUG USE FOR UNKNOWN INDICATION
     Route: 048
  17. NOVOLOG [Concomitant]
     Indication: DIABETES MELLITUS
     Dosage: DOSE UNIT:UNKNOWN
     Route: 058

REACTIONS (14)
  - ABDOMINAL PAIN [None]
  - ANOREXIA [None]
  - BLISTER [None]
  - BLOOD GLUCOSE DECREASED [None]
  - CHAPPED LIPS [None]
  - DIARRHOEA [None]
  - ERYTHEMA [None]
  - HYPERHIDROSIS [None]
  - MALAISE [None]
  - NAUSEA [None]
  - RETCHING [None]
  - SOMNOLENCE [None]
  - SWELLING FACE [None]
  - VOMITING [None]
